FAERS Safety Report 25253289 (Version 1)
Quarter: 2025Q2

REPORT INFORMATION
  Report Type: Other
  Country: GB (occurrence: GB)
  Receive Date: 20250430
  Receipt Date: 20250430
  Transmission Date: 20250717
  Serious: Yes (Other)
  Sender: FDC LIMITED
  Company Number: GB-MHRA-TPP13217908C10754026YC1744716388737

PATIENT
  Age: 60 Year
  Sex: Female
  Weight: 58 kg

DRUGS (4)
  1. LATANOPROST [Suspect]
     Active Substance: LATANOPROST
     Indication: Ill-defined disorder
  2. CLARITHROMYCIN [Concomitant]
     Active Substance: CLARITHROMYCIN
     Indication: Ill-defined disorder
     Dates: start: 20250324, end: 20250329
  3. BIMATOPROST [Concomitant]
     Active Substance: BIMATOPROST
     Indication: Ill-defined disorder
     Dates: start: 20250415
  4. AMLODIPINE [Concomitant]
     Active Substance: AMLODIPINE BESYLATE
     Indication: Ill-defined disorder
     Dates: start: 20241001

REACTIONS (3)
  - Wheezing [Unknown]
  - Dry mouth [Unknown]
  - Cough [Recovered/Resolved]
